FAERS Safety Report 9077826 (Version 1)
Quarter: 2013Q1

REPORT INFORMATION
  Report Type: Report from Study
  Country: US (occurrence: US)
  Receive Date: 20130130
  Receipt Date: 20130130
  Transmission Date: 20140127
  Serious: No
  Sender: FDA-Public Use
  Company Number: US-ABBOTT-12P-163-0972952-00

PATIENT
  Sex: Female
  Weight: 77.63 kg

DRUGS (15)
  1. HUMIRA 40 MG/0.8 ML PEN [Suspect]
     Indication: PSORIATIC ARTHROPATHY
     Dates: start: 201205
  2. METHOTREXATE [Concomitant]
     Indication: PSORIATIC ARTHROPATHY
  3. METAXALONE [Concomitant]
     Indication: FIBROMYALGIA
  4. METAXALONE [Concomitant]
     Indication: MUSCLE SPASMS
  5. HYDROCODONE- ACETAMINOPHEN [Concomitant]
     Indication: PAIN
  6. CYMBALTA [Concomitant]
     Indication: DEPRESSION
  7. XANAX [Concomitant]
     Indication: ANXIETY
  8. FUROSEMIDE [Concomitant]
     Indication: FLUID RETENTION
  9. PROVIGIL [Concomitant]
     Indication: CHRONIC FATIGUE SYNDROME
  10. AMITRIPTYLINE HCL [Concomitant]
     Indication: SLEEP DISORDER THERAPY
  11. FLUTICASONE PROPIONATE [Concomitant]
     Indication: SINUS HEADACHE
     Route: 045
  12. UNNAMED FOOT CREAM [Concomitant]
     Indication: INFECTION PROPHYLAXIS
     Route: 061
  13. LIDODERM [Concomitant]
     Indication: PAIN
     Route: 062
  14. VITAMIN B12 [Concomitant]
     Indication: VITAMIN SUPPLEMENTATION
  15. VITAMIN B12 [Concomitant]
     Indication: MALABSORPTION

REACTIONS (3)
  - Drug ineffective [Not Recovered/Not Resolved]
  - Sinusitis [Recovered/Resolved]
  - Herpes zoster [Recovered/Resolved]
